FAERS Safety Report 17261639 (Version 2)
Quarter: 2020Q2

REPORT INFORMATION
  Report Type: Spontaneous
  Country: US (occurrence: US)
  Receive Date: 20200113
  Receipt Date: 20200408
  Transmission Date: 20200713
  Serious: Yes (Death)
  Sender: FDA-Public Use
  Company Number: US-ROCHE-2519833

PATIENT
  Age: 46 Year
  Sex: Female

DRUGS (5)
  1. VALGANCICLOVIR. [Concomitant]
     Active Substance: VALGANCICLOVIR
     Indication: RENAL TRANSPLANT
     Dosage: 450 MG DAILY, STOP DATE : RECENT
     Route: 048
     Dates: start: 20190424
  2. CELLCEPT [Suspect]
     Active Substance: MYCOPHENOLATE MOFETIL\MYCOPHENOLATE MOFETIL HYDROCHLORIDE
     Indication: RENAL TRANSPLANT
     Dosage: STOP DATE :RECENT
     Route: 065
     Dates: start: 20180807
  3. PREDNISONE. [Concomitant]
     Active Substance: PREDNISONE
     Indication: RENAL TRANSPLANT
     Dosage: 7.5 MG DAILY, STOP DATE : RECENT
     Route: 048
     Dates: start: 20190111
  4. PROGRAF [Suspect]
     Active Substance: TACROLIMUS
     Indication: RENAL TRANSPLANT
     Dosage: 0.5 MG EVERY 12 HOURS, , STOP DATE : RECENT
     Route: 048
     Dates: start: 20190321
  5. PROGRAF [Suspect]
     Active Substance: TACROLIMUS
     Dosage: STOP DATE: RECENT
     Route: 048
     Dates: start: 20181101

REACTIONS (1)
  - Death [Fatal]

NARRATIVE: CASE EVENT DATE: 20191210
